FAERS Safety Report 17143736 (Version 3)
Quarter: 2020Q2

REPORT INFORMATION
  Report Type: Spontaneous
  Country: US (occurrence: US)
  Receive Date: 20191212
  Receipt Date: 20200519
  Transmission Date: 20200713
  Serious: No
  Sender: FDA-Public Use
  Company Number: US-PFIZER INC-2019534823

PATIENT
  Sex: Female

DRUGS (1)
  1. ADVIL [Suspect]
     Active Substance: IBUPROFEN
     Dosage: UNK [TAKE 1 TABLET EVERY 4 TO 6 HOURS WHILE SYMPTOMS PERSIST.  IF PAIN OR FEVER DOES NOT RESPOND TO]

REACTIONS (1)
  - Constipation [Unknown]
